FAERS Safety Report 12804032 (Version 1)
Quarter: 2016Q4

REPORT INFORMATION
  Report Type: Other
  Country: DE (occurrence: DE)
  Receive Date: 20161003
  Receipt Date: 20161003
  Transmission Date: 20170207
  Serious: Yes (Hospitalization, Other)
  Sender: FDA-Public Use
  Company Number: DE-ACTELION-A-CH2016-142911

PATIENT
  Age: 26 Year
  Sex: Female

DRUGS (6)
  1. ENALAPRIL [Concomitant]
     Active Substance: ENALAPRIL
     Dosage: 10 MG, UNK
  2. SPIRONOLACTONE. [Concomitant]
     Active Substance: SPIRONOLACTONE
     Dosage: 25 MG, OD
  3. VENTAVIS [Concomitant]
     Active Substance: ILOPROST
     Indication: PULMONARY ARTERIAL HYPERTENSION
     Route: 055
  4. TRACLEER [Suspect]
     Active Substance: BOSENTAN
     Indication: PERIPARTUM CARDIOMYOPATHY
     Dosage: 32 MG, BID
     Route: 048
  5. METOPROLOL. [Concomitant]
     Active Substance: METOPROLOL
     Dosage: 47.5 MG, BID
  6. TORASEMIDE [Concomitant]
     Active Substance: TORSEMIDE
     Dosage: 15 MG, TID

REACTIONS (7)
  - Aspartate aminotransferase increased [Unknown]
  - Ventricular hypertrophy [Unknown]
  - Gamma-glutamyltransferase increased [Unknown]
  - Cerebral artery embolism [Unknown]
  - Heart transplant [Unknown]
  - Ventricular assist device insertion [Unknown]
  - Alanine aminotransferase increased [Unknown]
